FAERS Safety Report 6581567-4 (Version None)
Quarter: 2010Q1

REPORT INFORMATION
  Report Type: 
  Country: None (occurrence: None)
  Receive Date: 20100215
  Receipt Date: 20100205
  Transmission Date: 20100710
  Serious: Yes (Other)
  Sender: FDA-Public Use
  Company Number: JP-JNJFOC-20090201796

PATIENT
  Sex: Female

DRUGS (12)
  1. FINIBAX [Suspect]
     Indication: SEPSIS
     Dosage: TOTAL DAILY DOSE 1.5 G
     Route: 041
     Dates: start: 20090126, end: 20090128
  2. RED BLOOD CELLS [Concomitant]
  3. INFECTION PROPHYLAXIS [Concomitant]
  4. GASTROM [Concomitant]
     Route: 048
  5. POLYMYXIN-B-SULFATE [Concomitant]
     Route: 048
  6. ALLELOCK [Concomitant]
     Route: 048
  7. ZANTAC [Concomitant]
     Route: 048
  8. ITRIZOLE [Concomitant]
     Route: 048
  9. SOLU-CORTEF [Concomitant]
  10. NEUTROGIN [Concomitant]
  11. HEPAFLUSH [Concomitant]
  12. PLATELETS [Concomitant]

REACTIONS (1)
  - HAEMATURIA [None]
